FAERS Safety Report 18236404 (Version 6)
Quarter: 2025Q4

REPORT INFORMATION
  Report Type: Spontaneous
  Country: EU (occurrence: EU)
  Receive Date: 20200907
  Receipt Date: 20251028
  Transmission Date: 20260117
  Serious: Yes (Other)
  Sender: AUROBINDO
  Company Number: EU-MLMSERVICE-20200825-2452393-1

PATIENT
  Age: 48 Year
  Sex: Male

DRUGS (6)
  1. PRAVASTATIN [Suspect]
     Active Substance: PRAVASTATIN
     Indication: Type IIb hyperlipidaemia
     Dosage: 20 MILLIGRAM, DAILY
     Route: 065
  2. PRAVASTATIN [Suspect]
     Active Substance: PRAVASTATIN
     Indication: Type IIa hyperlipidaemia
  3. SIMVASTATIN [Suspect]
     Active Substance: SIMVASTATIN
     Indication: Type IIb hyperlipidaemia
     Dosage: 10 MILLIGRAM, DAILY
     Route: 065
  4. EZETIMIBE [Concomitant]
     Active Substance: EZETIMIBE
     Indication: Low density lipoprotein
     Dosage: UNK
  5. ALIROCUMAB [Concomitant]
     Active Substance: ALIROCUMAB
     Indication: Low density lipoprotein
     Dosage: 75 MILLIGRAM
     Route: 058
  6. FENOFIBRATE [Concomitant]
     Active Substance: FENOFIBRATE
     Indication: Low density lipoprotein
     Dosage: UNK
     Route: 065

REACTIONS (4)
  - Myositis [Unknown]
  - Fall [Unknown]
  - Drug intolerance [Unknown]
  - Myalgia [Recovered/Resolved]
